FAERS Safety Report 4366137-0 (Version None)
Quarter: 2004Q2

REPORT INFORMATION
  Report Type: 
  Country: None (occurrence: None)
  Receive Date: 20040526
  Receipt Date: 20040526
  Transmission Date: 20050107
  Serious: Yes (Hospitalization)
  Sender: FDA-Public Use
  Company Number: None

PATIENT
  Age: 63 Year
  Sex: Male
  Weight: 77.1115 kg

DRUGS (3)
  1. UROXATRAL [Suspect]
     Indication: HYPERTONIC BLADDER
     Dosage: 10 MG ONCE DAILY ORAL
     Route: 048
     Dates: start: 20040409, end: 20040424
  2. UROXATRAL [Suspect]
     Indication: URINARY TRACT INFECTION
     Dosage: 10 MG ONCE DAILY ORAL
     Route: 048
     Dates: start: 20040409, end: 20040424
  3. UROXATRAL [Suspect]
     Indication: URINARY TRACT OBSTRUCTION
     Dosage: 10 MG ONCE DAILY ORAL
     Route: 048
     Dates: start: 20040409, end: 20040424

REACTIONS (4)
  - BLOOD PRESSURE DECREASED [None]
  - HEART RATE DECREASED [None]
  - PALLOR [None]
  - SYNCOPE [None]
